FAERS Safety Report 6971120-2 (Version None)
Quarter: 2010Q3

REPORT INFORMATION
  Report Type: 
  Country: None (occurrence: None)
  Receive Date: 20100908
  Receipt Date: 20100901
  Transmission Date: 20110219
  Serious: Yes (Hospitalization)
  Sender: FDA-Public Use
  Company Number: FR-JNJFOC-20100900450

PATIENT
  Age: 75 Year
  Sex: Female

DRUGS (2)
  1. LEVOFLOXACIN [Suspect]
     Indication: PNEUMONIA
     Route: 065
  2. LEVOFLOXACIN [Suspect]
     Indication: LUNG DISORDER
     Route: 065

REACTIONS (2)
  - OEDEMA PERIPHERAL [None]
  - RASH PAPULAR [None]
